FAERS Safety Report 20587569 (Version 5)
Quarter: 2022Q2

REPORT INFORMATION
  Report Type: Spontaneous
  Country: US (occurrence: US)
  Receive Date: 20220314
  Receipt Date: 20220620
  Transmission Date: 20220721
  Serious: Yes (Hospitalization, Other)
  Sender: FDA-Public Use
  Company Number: US-GLAXOSMITHKLINE-US2022AMR042457

PATIENT

DRUGS (5)
  1. ZEJULA [Suspect]
     Active Substance: NIRAPARIB
     Indication: Ovarian cancer
     Dosage: 100 MG, QD
     Dates: start: 20201030
  2. ZEJULA [Suspect]
     Active Substance: NIRAPARIB
     Indication: Metastases to ovary
     Dosage: 100 MG, QD
  3. MINOCYCLINE [Suspect]
     Active Substance: MINOCYCLINE HYDROCHLORIDE
     Indication: Product used for unknown indication
     Dosage: UNK
  4. KEFLEX [Suspect]
     Active Substance: CEPHALEXIN
     Indication: Product used for unknown indication
     Dosage: UNK
  5. OXYGEN [Concomitant]
     Active Substance: OXYGEN
     Indication: Product used for unknown indication
     Dosage: UNK

REACTIONS (17)
  - Neoplasm malignant [Unknown]
  - Pulmonary oedema [Unknown]
  - Pneumonia [Unknown]
  - Hypertension [Unknown]
  - Pulmonary thrombosis [Unknown]
  - Thermal burn [Recovering/Resolving]
  - Facial pain [Unknown]
  - Nasal obstruction [Unknown]
  - Nasal oedema [Unknown]
  - Skin wound [Unknown]
  - Burns second degree [Unknown]
  - Obesity [Unknown]
  - Wheezing [Unknown]
  - Anxiety [Unknown]
  - Drug hypersensitivity [Unknown]
  - Lung operation [Unknown]
  - Product dose omission issue [Unknown]

NARRATIVE: CASE EVENT DATE: 20220501
